FAERS Safety Report 20800434 (Version 1)
Quarter: 2022Q2

REPORT INFORMATION
  Report Type: Spontaneous
  Country: JP (occurrence: JP)
  Receive Date: 20220509
  Receipt Date: 20220509
  Transmission Date: 20220720
  Serious: Yes (Hospitalization, Other)
  Sender: FDA-Public Use
  Company Number: JP-ATLANTIDE PHARMACEUTICALS AG-2022ATL000021

PATIENT
  Age: 38 Year
  Sex: Male
  Weight: 51.2 kg

DRUGS (1)
  1. CEFTRIAXONE [Suspect]
     Active Substance: CEFTRIAXONE
     Indication: Enteritis
     Dosage: 2 GRAM, QD
     Route: 065

REACTIONS (1)
  - Toxic encephalopathy [Recovered/Resolved]
